FAERS Safety Report 20073391 (Version 2)
Quarter: 2021Q4

REPORT INFORMATION
  Report Type: Spontaneous
  Country: US (occurrence: None)
  Receive Date: 20211116
  Receipt Date: 20211122
  Transmission Date: 20220303
  Serious: Yes (Hospitalization)
  Sender: FDA-Public Use
  Company Number: 2021A801956

PATIENT
  Age: 68 Year
  Sex: Female
  Weight: 77.1 kg

DRUGS (2)
  1. PULMICORT FLEXHALER [Suspect]
     Active Substance: BUDESONIDE
     Indication: Asthma
     Dosage: 180 MCG, 1 PUFF AT NIGHT
     Route: 055
  2. ADVAIR HFA [Concomitant]
     Active Substance: FLUTICASONE PROPIONATE\SALMETEROL XINAFOATE
     Dosage: 1 PUFF IN AM

REACTIONS (9)
  - Pneumonia [Unknown]
  - Bronchitis [Unknown]
  - Insomnia [Unknown]
  - Lung disorder [Unknown]
  - Incorrect dose administered by device [Unknown]
  - Product use issue [Not Recovered/Not Resolved]
  - Therapeutic product effect decreased [Unknown]
  - Intentional device misuse [Unknown]
  - Device malfunction [Unknown]

NARRATIVE: CASE EVENT DATE: 20190101
